FAERS Safety Report 21081515 (Version 1)
Quarter: 2022Q3

REPORT INFORMATION
  Report Type: Spontaneous
  Country: CN (occurrence: CN)
  Receive Date: 20220714
  Receipt Date: 20220714
  Transmission Date: 20221027
  Serious: Yes (Other)
  Sender: FDA-Public Use
  Company Number: CN-009507513-2207CHN002677

PATIENT
  Age: 59 Year
  Sex: Male

DRUGS (2)
  1. IMIPENEM AND CILASTATIN [Suspect]
     Active Substance: CILASTATIN SODIUM\IMIPENEM
     Indication: Nocardiosis
     Dosage: 1G IVGTT Q8H
     Route: 041
  2. SULFAMETHOXAZOLE [Concomitant]
     Active Substance: SULFAMETHOXAZOLE
     Indication: Nocardiosis
     Dosage: TRIMETHOPRIM 0.32G + SULFAMETHOXAZOLE 1.6G  TID
     Route: 048

REACTIONS (2)
  - Epilepsy [Recovered/Resolved]
  - Product use in unapproved indication [Unknown]
